FAERS Safety Report 4746074-X (Version None)
Quarter: 2005Q3

REPORT INFORMATION
  Report Type: 
  Country: None (occurrence: None)
  Receive Date: 20050816
  Receipt Date: 20050804
  Transmission Date: 20060218
  Serious: Yes (Hospitalization)
  Sender: FDA-Public Use
  Company Number: US-ROCHE-413746

PATIENT
  Age: 60 Year
  Sex: Male
  Weight: 123.2 kg

DRUGS (4)
  1. CAPECITABINE [Suspect]
     Indication: RECTAL CANCER
     Dosage: GIVEN FIVE DAYS A WEEK WITH TWO DAYS REST.
     Route: 048
     Dates: start: 20050717, end: 20050726
  2. CAPECITABINE [Suspect]
     Dosage: GIVEN FIVE DAYS A WEEK WITH TWO DAYS REST.
     Route: 048
     Dates: start: 20050801
  3. OXALIPLATIN [Suspect]
     Indication: RECTAL CANCER
     Route: 042
     Dates: start: 20050718, end: 20050725
  4. OXALIPLATIN [Suspect]
     Route: 042
     Dates: start: 20050801

REACTIONS (10)
  - ABDOMINAL PAIN [None]
  - ABDOMINAL TENDERNESS [None]
  - CARDIOMEGALY [None]
  - COLITIS [None]
  - GASTROINTESTINAL PAIN [None]
  - HAEMORRHOIDS [None]
  - INTESTINAL MASS [None]
  - PROCTALGIA [None]
  - PROCTITIS [None]
  - RECTAL HAEMORRHAGE [None]
